FAERS Safety Report 8473105-6 (Version None)
Quarter: 2012Q2

REPORT INFORMATION
  Report Type: 
  Country: None (occurrence: None)
  Receive Date: 20120627
  Receipt Date: 20111006
  Transmission Date: 20120825
  Serious: Yes (Hospitalization, Disabling)
  Sender: FDA-Public Use
  Company Number: FR-ROCHE-1013077

PATIENT
  Sex: Male
  Weight: 103 kg

DRUGS (17)
  1. ASPIRIN [Concomitant]
     Dates: start: 20050901
  2. PHENOXYMETHYL PENICILLIN [Concomitant]
     Dates: start: 20090904
  3. NITROGLYCERIN [Concomitant]
     Dates: start: 20110215
  4. PLAVIX [Suspect]
     Route: 048
     Dates: start: 20110428
  5. NOVORAPID [Concomitant]
     Dates: start: 20100301
  6. CYCLOPHOSPHAMIDE [Suspect]
     Dates: start: 20110623, end: 20110822
  7. DIGOXIN [Concomitant]
     Dates: start: 20100301
  8. NEBIVOLOL HCL [Concomitant]
     Dates: start: 20110428
  9. LANTUS [Concomitant]
     Dates: start: 20100301
  10. FLUDARABINE PHOSPHATE [Suspect]
     Dates: start: 20110623, end: 20110822
  11. PENTOXIFYLLINE [Concomitant]
     Dates: start: 20101215
  12. ATORVASTATIN [Concomitant]
     Dates: start: 20050901
  13. LERCANIDIPINE [Concomitant]
     Dates: start: 20100901
  14. LANTUS [Concomitant]
     Dosage: 28 UNIT IN THE EVENING
  15. NO DRUG ADMINISTERED (RITUXIMAB) [Suspect]
     Indication: CHRONIC LYMPHOCYTIC LEUKAEMIA
  16. NEBIVOLOL HCL [Concomitant]
  17. AMARYL [Concomitant]
     Dates: start: 20100301

REACTIONS (1)
  - CEREBRAL ISCHAEMIA [None]
